FAERS Safety Report 14532203 (Version 1)
Quarter: 2018Q1

REPORT INFORMATION
  Report Type: Report from Study
  Country: FI (occurrence: FI)
  Receive Date: 20180214
  Receipt Date: 20180214
  Transmission Date: 20180509
  Serious: Yes (Hospitalization)
  Sender: FDA-Public Use
  Company Number: FI-INTERCEPT-CTOCA2017001108

PATIENT

DRUGS (11)
  1. COHEMIN DEPOT [Concomitant]
     Indication: CHRONIC GASTRITIS
     Dosage: 1 MG
     Route: 030
     Dates: start: 20120312
  2. TENOX [Concomitant]
     Indication: INSOMNIA
     Dosage: 10 MG, PRN
     Route: 048
     Dates: start: 20110930
  3. BURANA [Concomitant]
     Active Substance: IBUPROFEN
     Indication: UPPER RESPIRATORY TRACT INFECTION
  4. ATARAX [Concomitant]
     Active Substance: HYDROXYZINE HYDROCHLORIDE
     Indication: RASH
  5. ENTOCORT [Concomitant]
     Active Substance: BUDESONIDE
     Indication: PRIMARY BILIARY CHOLANGITIS
     Dosage: 3 MG, QD
     Route: 048
     Dates: start: 20161201
  6. ATARAX [Concomitant]
     Active Substance: HYDROXYZINE HYDROCHLORIDE
     Indication: PRURITUS
  7. OBETICHOLIC ACID [Suspect]
     Active Substance: OBETICHOLIC ACID
     Indication: PRIMARY BILIARY CHOLANGITIS
     Dosage: 5 MG, QD
     Route: 048
     Dates: start: 20160902
  8. ATARAX [Concomitant]
     Active Substance: HYDROXYZINE HYDROCHLORIDE
     Indication: PRIMARY BILIARY CHOLANGITIS
     Dosage: 25 MG, PRN
     Route: 048
     Dates: start: 20110930
  9. PROPRAL [Concomitant]
     Indication: CARDIOVASCULAR DISORDER
     Dosage: 40 MG, PRN
     Route: 048
     Dates: start: 20140408
  10. THYROXIN [Concomitant]
     Active Substance: LEVOTHYROXINE
     Indication: HYPOTHYROIDISM
     Dosage: 350 MCG, QD
     Route: 048
     Dates: start: 20170516
  11. BURANA [Concomitant]
     Active Substance: IBUPROFEN
     Indication: MYALGIA
     Dosage: 600 MG, PRN
     Route: 048
     Dates: start: 20030101

REACTIONS (1)
  - Pyelonephritis [Recovered/Resolved with Sequelae]

NARRATIVE: CASE EVENT DATE: 20171003
